FAERS Safety Report 9281580 (Version 1)
Quarter: 2013Q2

REPORT INFORMATION
  Report Type: Spontaneous
  Country: BR (occurrence: BR)
  Receive Date: 20130509
  Receipt Date: 20130509
  Transmission Date: 20140414
  Serious: Yes (Hospitalization)
  Sender: FDA-Public Use
  Company Number: BR-ELI_LILLY_AND_COMPANY-BR201304008756

PATIENT
  Sex: Male
  Weight: 88 kg

DRUGS (5)
  1. HUMULIN NPH [Suspect]
     Indication: TYPE 1 DIABETES MELLITUS
     Dosage: 40 IU, OTHER
     Route: 058
     Dates: start: 1978
  2. HUMULIN NPH [Suspect]
     Dosage: 80 IU, OTHER
     Route: 058
     Dates: start: 1978
  3. HUMULIN NPH [Suspect]
     Dosage: 45 IU, BID
     Route: 058
  4. HUMULIN REGULAR [Suspect]
     Indication: TYPE 1 DIABETES MELLITUS
     Dosage: 10 IU, QD
     Route: 058
  5. HUMULIN REGULAR [Suspect]
     Dosage: 10 IU, QD
     Route: 058
     Dates: start: 201304

REACTIONS (4)
  - Extremity necrosis [Recovered/Resolved]
  - Medication error [Unknown]
  - Hyperkeratosis [Unknown]
  - Hypoglycaemia [Recovered/Resolved]
